FAERS Safety Report 8172546-4 (Version None)
Quarter: 2012Q1

REPORT INFORMATION
  Report Type: 
  Country: None (occurrence: None)
  Receive Date: 20120229
  Receipt Date: 20120220
  Transmission Date: 20120608
  Serious: Yes (Hospitalization)
  Sender: FDA-Public Use
  Company Number: US-BAYER-2012-002191

PATIENT
  Age: 24 Year
  Sex: Female
  Weight: 77.098 kg

DRUGS (4)
  1. YAZ [Suspect]
     Indication: MENSTRUAL CYCLE MANAGEMENT
  2. YASMIN [Suspect]
     Indication: CONTRACEPTION
     Dosage: UNK
     Route: 048
     Dates: start: 20080101, end: 20080301
  3. YASMIN [Suspect]
     Indication: MENSTRUAL CYCLE MANAGEMENT
     Dosage: UNK
     Route: 048
     Dates: start: 20050901, end: 20070901
  4. YAZ [Suspect]
     Indication: CONTRACEPTION
     Dosage: UNK
     Route: 048
     Dates: start: 20070901, end: 20071201

REACTIONS (12)
  - DYSPEPSIA [None]
  - NERVOUSNESS [None]
  - NAUSEA [None]
  - BILIARY COLIC [None]
  - EMOTIONAL DISTRESS [None]
  - DEPRESSION [None]
  - FEAR OF DEATH [None]
  - VOMITING [None]
  - BACK PAIN [None]
  - ABDOMINAL PAIN UPPER [None]
  - INJURY [None]
  - DIARRHOEA [None]
